FAERS Safety Report 18605748 (Version 2)
Quarter: 2021Q1

REPORT INFORMATION
  Report Type: Spontaneous
  Country: FR (occurrence: FR)
  Receive Date: 20201211
  Receipt Date: 20210119
  Transmission Date: 20210419
  Serious: Yes (Hospitalization, Other)
  Sender: FDA-Public Use
  Company Number: FR-MYLANLABS-2020M1100474

PATIENT
  Age: 69 Year
  Sex: Female
  Weight: 69 kg

DRUGS (7)
  1. LAMALINE (ACETAMINOPHEN\CAFFEINE\OPIUM) [Concomitant]
     Active Substance: ACETAMINOPHEN\CAFFEINE\OPIUM
     Indication: PAIN
     Dosage: UNK
     Route: 054
     Dates: start: 20200828
  2. EUPANTOL [Concomitant]
     Active Substance: PANTOPRAZOLE SODIUM
     Indication: GASTROOESOPHAGEAL REFLUX DISEASE
     Dosage: 40 MILLIGRAM, QD
     Route: 048
  3. CALCIPARINE [Concomitant]
     Active Substance: HEPARIN CALCIUM
     Indication: THROMBOSIS PROPHYLAXIS
     Dosage: 0.4 MILLILITER, QD
     Route: 065
     Dates: start: 20200828
  4. ALDACTONE [Concomitant]
     Active Substance: SPIRONOLACTONE
     Indication: HYPERTENSION
     Dosage: 75 MILLIGRAM, QD
     Route: 048
     Dates: start: 20200909, end: 20200909
  5. CEFEPIME [Suspect]
     Active Substance: CEFEPIME HYDROCHLORIDE
     Indication: OSTEOMYELITIS
     Dosage: 6 GRAM, QD (2 GRAM, Q8H)
     Route: 065
     Dates: start: 20200828, end: 20200910
  6. RENITEC                            /00574902/ [Concomitant]
     Active Substance: ENALAPRIL MALEATE
     Indication: HYPERTENSION
     Dosage: 20 MILLIGRAM, QD (LYOPHILISAT ORAL)
     Route: 048
     Dates: start: 20200909, end: 20200909
  7. VANCOMYCIN [Suspect]
     Active Substance: VANCOMYCIN
     Indication: OSTEOMYELITIS
     Dosage: 2.5 GRAM, QD (1.25 GRAM, Q12H)
     Route: 042
     Dates: start: 20200828, end: 20200831

REACTIONS (3)
  - Acute kidney injury [Recovered/Resolved]
  - Encephalopathy [Recovered/Resolved]
  - Intentional product use issue [Unknown]

NARRATIVE: CASE EVENT DATE: 20200907
